FAERS Safety Report 6961089-9 (Version None)
Quarter: 2010Q3

REPORT INFORMATION
  Report Type: 
  Country: None (occurrence: None)
  Receive Date: 20100901
  Receipt Date: 20100825
  Transmission Date: 20110219
  Serious: Yes (Other)
  Sender: FDA-Public Use
  Company Number: US-ABBOTT-10P-163-0666327-00

PATIENT
  Age: 83 Year
  Sex: Male
  Weight: 73 kg

DRUGS (8)
  1. VICODIN [Suspect]
     Indication: PRODUCT USED FOR UNKNOWN INDICATION
     Dates: start: 20091207
  2. XANAX [Suspect]
     Indication: NERVOUSNESS
     Dosage: AT BEDTIME AS NEEDED
     Dates: start: 20100501, end: 20100501
  3. XANAX [Suspect]
     Indication: TENSION
  4. XANAX [Suspect]
     Indication: ANXIETY
  5. IMODIUM [Suspect]
     Indication: PRODUCT USED FOR UNKNOWN INDICATION
  6. LEVOXYL [Concomitant]
     Indication: PRODUCT USED FOR UNKNOWN INDICATION
  7. TYLENOL-500 [Concomitant]
     Indication: PRODUCT USED FOR UNKNOWN INDICATION
  8. ASPIRIN [Concomitant]
     Indication: PRODUCT USED FOR UNKNOWN INDICATION

REACTIONS (8)
  - DIARRHOEA [None]
  - DIZZINESS [None]
  - DRUG INEFFECTIVE [None]
  - DRUG INTERACTION [None]
  - DRUG TOXICITY [None]
  - GAIT DISTURBANCE [None]
  - VERTIGO [None]
  - WEIGHT DECREASED [None]
